FAERS Safety Report 7042835-5 (Version None)
Quarter: 2010Q4

REPORT INFORMATION
  Report Type: 
  Country: None (occurrence: None)
  Receive Date: 20101013
  Receipt Date: 20100601
  Transmission Date: 20110411
  Serious: No
  Sender: FDA-Public Use
  Company Number: US-ASTRAZENECA-2010SE25388

PATIENT
  Sex: Female

DRUGS (3)
  1. SYMBICORT [Suspect]
     Indication: ASTHMA
     Dosage: TOTAL DAILY DOSE:160 UG
     Route: 055
     Dates: start: 20100401
  2. VENTOLIN [Concomitant]
     Route: 065
  3. ASMACORT [Concomitant]
     Route: 065

REACTIONS (1)
  - DYSPNOEA [None]
